FAERS Safety Report 4800717-0 (Version None)
Quarter: 2005Q3

REPORT INFORMATION
  Report Type: 
  Country: None (occurrence: None)
  Receive Date: 20050929
  Receipt Date: 20050719
  Transmission Date: 20060218
  Serious: No
  Sender: FDA-Public Use
  Company Number: 05P-163-0306137

PATIENT
  Age: 46 Year
  Sex: Female
  Weight: 67.586 kg

DRUGS (5)
  1. HUMIRA [Suspect]
     Indication: RHEUMATOID ARTHRITIS
     Dosage: 40 MG, 1 IN 10 D, SUBCUTANEOUS
     Route: 058
     Dates: start: 20041201
  2. PREDNISONE [Concomitant]
  3. TRAZODONE HCL [Concomitant]
  4. FLUOXETINE HYDROCHLORIDE [Concomitant]
  5. PIROXICAM [Concomitant]

REACTIONS (1)
  - COUGH [None]
